FAERS Safety Report 9716943 (Version 2)
Quarter: 2015Q3

REPORT INFORMATION
  Report Type: Spontaneous
  Country: US (occurrence: US)
  Receive Date: 20131127
  Receipt Date: 20150803
  Transmission Date: 20151125
  Serious: No
  Sender: FDA-Public Use
  Company Number: US-GILEAD-2009-0020009

PATIENT
  Age: 48 Year
  Sex: Female
  Weight: 97.07 kg

DRUGS (27)
  1. ASPIRIN. [Concomitant]
     Active Substance: ASPIRIN
  2. MELATONIN [Concomitant]
     Active Substance: MELATONIN
  3. MAG-OXIDE [Concomitant]
  4. OMEGA 3 FISH OIL [Concomitant]
     Active Substance: FISH OIL\OMEGA-3 FATTY ACIDS
  5. CARTIA XT [Concomitant]
     Active Substance: DILTIAZEM HYDROCHLORIDE
  6. VITAMIN D [Concomitant]
     Active Substance: CHOLECALCIFEROL
  7. XALATAN [Concomitant]
     Active Substance: LATANOPROST
  8. TRAMADOL. [Concomitant]
     Active Substance: TRAMADOL
  9. ASTELIN [Concomitant]
     Active Substance: AZELASTINE HYDROCHLORIDE
  10. LASIX [Concomitant]
     Active Substance: FUROSEMIDE
  11. ALBUTEROL. [Concomitant]
     Active Substance: ALBUTEROL
  12. ORENCIA [Concomitant]
     Active Substance: ABATACEPT
  13. ALPHAGAN P [Concomitant]
     Active Substance: BRIMONIDINE TARTRATE
  14. LETAIRIS [Suspect]
     Active Substance: AMBRISENTAN
     Route: 048
     Dates: start: 20080609
  15. REVATIO [Concomitant]
     Active Substance: SILDENAFIL CITRATE
  16. LIPITOR [Concomitant]
     Active Substance: ATORVASTATIN CALCIUM
  17. PREDNISONE. [Concomitant]
     Active Substance: PREDNISONE
  18. ADVAIR DISKUS [Concomitant]
     Active Substance: FLUTICASONE PROPIONATE\SALMETEROL XINAFOATE
  19. FOSAMAX [Concomitant]
     Active Substance: ALENDRONATE SODIUM
  20. BENADRYL [Concomitant]
     Active Substance: DIPHENHYDRAMINE HYDROCHLORIDE
  21. HUMULIN R [Concomitant]
     Active Substance: INSULIN HUMAN
  22. ACTOS [Concomitant]
     Active Substance: PIOGLITAZONE HYDROCHLORIDE
  23. LEVOTHYROXINE. [Concomitant]
     Active Substance: LEVOTHYROXINE
  24. DIOVAN [Concomitant]
     Active Substance: VALSARTAN
  25. SINGULAIR [Concomitant]
     Active Substance: MONTELUKAST SODIUM
  26. VERAMYST [Concomitant]
     Active Substance: FLUTICASONE FUROATE
  27. MULTIVITAMIN [Concomitant]
     Active Substance: VITAMINS

REACTIONS (1)
  - Muscle twitching [Unknown]
